FAERS Safety Report 23463796 (Version 1)
Quarter: 2024Q1

REPORT INFORMATION
  Report Type: Spontaneous
  Country: US (occurrence: US)
  Receive Date: 20240201
  Receipt Date: 20240201
  Transmission Date: 20240409
  Serious: No
  Sender: FDA-Public Use
  Company Number: US-FDC-2023USSPO00957

PATIENT
  Sex: Female

DRUGS (1)
  1. CIPROFLOXACIN [Suspect]
     Active Substance: CIPROFLOXACIN
     Indication: Product used for unknown indication
     Route: 047

REACTIONS (4)
  - Eye discharge [Unknown]
  - Nasal discharge discolouration [Unknown]
  - Nervousness [Unknown]
  - Eye irritation [Unknown]
